FAERS Safety Report 21346936 (Version 1)
Quarter: 2022Q3

REPORT INFORMATION
  Report Type: Spontaneous
  Country: US (occurrence: None)
  Receive Date: 20220916
  Receipt Date: 20220916
  Transmission Date: 20221027
  Serious: Yes (Hospitalization)
  Sender: FDA-Public Use
  Company Number: None

PATIENT
  Age: 74 Year
  Sex: Male
  Weight: 118 kg

DRUGS (1)
  1. OLANZAPINE [Suspect]
     Active Substance: OLANZAPINE
     Indication: Dementia
     Dosage: 5 MG EVERY DAY PO?
     Route: 048
     Dates: start: 20211025, end: 20220406

REACTIONS (5)
  - Hallucination, visual [None]
  - Delirium [None]
  - Acute sinusitis [None]
  - Non-24-hour sleep-wake disorder [None]
  - Confusional state [None]

NARRATIVE: CASE EVENT DATE: 20220406
